FAERS Safety Report 15987456 (Version 1)
Quarter: 2019Q1

REPORT INFORMATION
  Report Type: Report from Study
  Country: CA (occurrence: CA)
  Receive Date: 20190220
  Receipt Date: 20190220
  Transmission Date: 20190418
  Serious: Yes (Other)
  Sender: FDA-Public Use
  Company Number: CA-PFIZER INC-2019070410

PATIENT
  Age: 54 Year
  Sex: Female
  Weight: 53 kg

DRUGS (3)
  1. CARBOPLATIN. [Suspect]
     Active Substance: CARBOPLATIN
     Dosage: UNK
  2. PACLITAXEL. [Concomitant]
     Active Substance: PACLITAXEL
     Dosage: UNK
  3. AVASTIN [Suspect]
     Active Substance: BEVACIZUMAB
     Indication: OVARIAN CANCER
     Dosage: 800 MG, EVERY 3 WEEKS
     Route: 042

REACTIONS (4)
  - Rectal haemorrhage [Unknown]
  - Carbohydrate antigen 125 increased [Unknown]
  - Constipation [Unknown]
  - Infusion related reaction [Unknown]
